FAERS Safety Report 17153706 (Version 1)
Quarter: 2019Q4

REPORT INFORMATION
  Report Type: Spontaneous
  Country: US (occurrence: US)
  Receive Date: 20191213
  Receipt Date: 20191213
  Transmission Date: 20200122
  Serious: No
  Sender: FDA-Public Use
  Company Number: US-ARBOR PHARMACEUTICALS, LLC-US-2019ARB000325

PATIENT
  Sex: Male

DRUGS (1)
  1. ZENZEDI [Suspect]
     Active Substance: DEXTROAMPHETAMINE SULFATE
     Indication: PRODUCT USED FOR UNKNOWN INDICATION
     Dosage: UNK
     Route: 048

REACTIONS (18)
  - Dry eye [Unknown]
  - Product physical issue [Unknown]
  - Drug ineffective [Unknown]
  - Eye irritation [Unknown]
  - Balance disorder [Unknown]
  - Product solubility abnormal [Unknown]
  - Suspected counterfeit product [Unknown]
  - Heart rate decreased [Unknown]
  - Product use issue [Unknown]
  - Disturbance in attention [Unknown]
  - Heart rate increased [Unknown]
  - Paraesthesia [Unknown]
  - Tinnitus [Unknown]
  - Eye pain [Unknown]
  - Hypoaesthesia [Unknown]
  - Coordination abnormal [Unknown]
  - Product residue present [Unknown]
  - Product taste abnormal [Unknown]
